FAERS Safety Report 10820798 (Version 1)
Quarter: 2015Q1

REPORT INFORMATION
  Report Type: Spontaneous
  Country: US (occurrence: US)
  Receive Date: 20150218
  Receipt Date: 20150218
  Transmission Date: 20150721
  Serious: No
  Sender: FDA-Public Use
  Company Number: US-CELGENEUS-163-21880-13093293

PATIENT
  Sex: Male
  Weight: 79.8 kg

DRUGS (1)
  1. REVLIMID [Suspect]
     Active Substance: LENALIDOMIDE
     Indication: LYMPHOMA
     Dosage: 10 MILLIGRAM
     Route: 048
     Dates: start: 20130731

REACTIONS (3)
  - Contusion [Unknown]
  - Rash [Unknown]
  - Pollakiuria [Unknown]

NARRATIVE: CASE EVENT DATE: 2013
